FAERS Safety Report 13505875 (Version 2)
Quarter: 2017Q2

REPORT INFORMATION
  Report Type: Spontaneous
  Country: US (occurrence: US)
  Receive Date: 20170502
  Receipt Date: 20170502
  Transmission Date: 20170830
  Serious: Yes (Hospitalization)
  Sender: FDA-Public Use
  Company Number: US-VIFOR (INTERNATIONAL) INC.-VIT-2017-04766

PATIENT
  Age: 69 Year
  Sex: Male

DRUGS (16)
  1. DIGOXIN. [Concomitant]
     Active Substance: DIGOXIN
  2. TAMSULOSIN HYDROCHLORIDE. [Concomitant]
     Active Substance: TAMSULOSIN HYDROCHLORIDE
  3. PROCRIT [Concomitant]
     Active Substance: ERYTHROPOIETIN
  4. IRON [Concomitant]
     Active Substance: IRON
  5. SERTRALINE HYDROCHLORIDE. [Concomitant]
     Active Substance: SERTRALINE HYDROCHLORIDE
  6. LASIX [Concomitant]
     Active Substance: FUROSEMIDE
  7. LANTUS [Concomitant]
     Active Substance: INSULIN GLARGINE
  8. GABAPENTIN. [Concomitant]
     Active Substance: GABAPENTIN
  9. VELTASSA [Suspect]
     Active Substance: PATIROMER
     Indication: HYPERKALAEMIA
     Route: 048
     Dates: start: 20170411, end: 2017
  10. METOPROLOL TARTRATE. [Concomitant]
     Active Substance: METOPROLOL TARTRATE
  11. LISINOPRIL. [Concomitant]
     Active Substance: LISINOPRIL
  12. PARACETAMOL [Concomitant]
     Active Substance: ACETAMINOPHEN
  13. COUMADIN [Concomitant]
     Active Substance: WARFARIN SODIUM
  14. CALCITRIOL. [Concomitant]
     Active Substance: CALCITRIOL
  15. TUMS [Concomitant]
     Active Substance: CALCIUM CARBONATE
  16. ALLOPURINOL. [Concomitant]
     Active Substance: ALLOPURINOL

REACTIONS (4)
  - Vomiting [Unknown]
  - Malaise [Unknown]
  - Dehydration [Unknown]
  - Blood urea increased [Unknown]

NARRATIVE: CASE EVENT DATE: 20170416
